FAERS Safety Report 13938960 (Version 1)
Quarter: 2017Q3

REPORT INFORMATION
  Report Type: Spontaneous
  Country: US (occurrence: None)
  Receive Date: 20170906
  Receipt Date: 20170906
  Transmission Date: 20171127
  Serious: No
  Sender: FDA-Public Use
  Company Number: None

PATIENT
  Age: 80 Year
  Sex: Male

DRUGS (1)
  1. ZYTIGA [Suspect]
     Active Substance: ABIRATERONE ACETATE

REACTIONS (7)
  - Urinary tract infection [None]
  - Hot flush [None]
  - Nausea [None]
  - Loss of consciousness [None]
  - Vomiting [None]
  - Dyspnoea [None]
  - Drug dose omission [None]

NARRATIVE: CASE EVENT DATE: 20170903
